FAERS Safety Report 9002667 (Version 1)
Quarter: 2013Q1

REPORT INFORMATION
  Report Type: Spontaneous
  Country: GB (occurrence: GB)
  Receive Date: 20130107
  Receipt Date: 20130107
  Transmission Date: 20140127
  Serious: Yes (Disabling, Other)
  Sender: FDA-Public Use
  Company Number: GB-PFIZER INC-2013000782

PATIENT
  Age: 28 Year
  Sex: Female
  Weight: 64.33 kg

DRUGS (1)
  1. DEPO-PROVERA [Suspect]
     Indication: CONTRACEPTION
     Dosage: UNK
     Route: 051
     Dates: start: 20040710, end: 20050313

REACTIONS (2)
  - Infertility [Not Recovered/Not Resolved]
  - Haemorrhage [Not Recovered/Not Resolved]
